FAERS Safety Report 16193872 (Version 1)
Quarter: 2019Q2

REPORT INFORMATION
  Report Type: Spontaneous
  Country: FR (occurrence: FR)
  Receive Date: 20190413
  Receipt Date: 20190413
  Transmission Date: 20190711
  Serious: Yes (Life-Threatening)
  Sender: FDA-Public Use
  Company Number: FR-ROCHE-2300199

PATIENT
  Age: 46 Year
  Sex: Female
  Weight: 91.5 kg

DRUGS (3)
  1. DOMPERIDONE [Suspect]
     Active Substance: DOMPERIDONE
     Indication: TOXICITY TO VARIOUS AGENTS
     Route: 048
     Dates: start: 20190318
  2. BACLOFENE ZENTIVA [Suspect]
     Active Substance: BACLOFEN
     Indication: TOXICITY TO VARIOUS AGENTS
     Route: 048
     Dates: start: 20190318
  3. DIAZEPAM. [Suspect]
     Active Substance: DIAZEPAM
     Indication: TOXICITY TO VARIOUS AGENTS
     Route: 048
     Dates: start: 20190318

REACTIONS (5)
  - Electroencephalogram abnormal [Recovered/Resolved]
  - Coma [Recovered/Resolved]
  - Myoclonus [Recovered/Resolved]
  - Agitation [Recovered/Resolved]
  - Toxicity to various agents [Recovered/Resolved]

NARRATIVE: CASE EVENT DATE: 20190318
